FAERS Safety Report 16964718 (Version 1)
Quarter: 2019Q4

REPORT INFORMATION
  Report Type: Spontaneous
  Country: US (occurrence: US)
  Receive Date: 20191028
  Receipt Date: 20191028
  Transmission Date: 20200122
  Serious: Yes (Other)
  Sender: FDA-Public Use
  Company Number: US-PFIZER INC-2019459991

PATIENT
  Sex: Male

DRUGS (3)
  1. CARBOPLATIN. [Suspect]
     Active Substance: CARBOPLATIN
     Indication: OESOPHAGEAL CARCINOMA
     Dosage: UNK
     Dates: start: 20190804
  2. TAXOL [Suspect]
     Active Substance: PACLITAXEL
     Indication: OESOPHAGEAL CARCINOMA
     Dosage: UNK
     Dates: start: 20140804
  3. 5-FU [FLUOROURACIL] [Suspect]
     Active Substance: FLUOROURACIL
     Dosage: UNK

REACTIONS (7)
  - Liver disorder [Unknown]
  - Dysphagia [Unknown]
  - Malaise [Unknown]
  - Pulmonary embolism [Unknown]
  - Full blood count decreased [Unknown]
  - Hypoaesthesia [Unknown]
  - Lung disorder [Unknown]

NARRATIVE: CASE EVENT DATE: 20190514
